FAERS Safety Report 11976476 (Version 1)
Quarter: 2016Q1

REPORT INFORMATION
  Report Type: Other
  Country: AU (occurrence: AU)
  Receive Date: 20160129
  Receipt Date: 20160129
  Transmission Date: 20160526
  Serious: Yes (Death, Other)
  Sender: FDA-Public Use
  Company Number: AU-ASTELLAS-2016US002948

PATIENT
  Age: 15 Year
  Sex: Female

DRUGS (4)
  1. VFEND [Suspect]
     Active Substance: VORICONAZOLE
     Route: 048
  2. CASPOFUNGIN [Concomitant]
     Active Substance: CASPOFUNGIN
     Indication: PRODUCT USED FOR UNKNOWN INDICATION
     Dosage: UNK UNK, UNKNOWN FREQ.
     Route: 065
  3. AMBISOME [Suspect]
     Active Substance: AMPHOTERICIN B
     Indication: PRODUCT USED FOR UNKNOWN INDICATION
     Dosage: UNK UNK, UNKNOWN FREQ.
     Route: 065
  4. VFEND [Suspect]
     Active Substance: VORICONAZOLE
     Indication: SYSTEMIC MYCOSIS
     Route: 042

REACTIONS (7)
  - Nodule [Fatal]
  - Drug level below therapeutic [Fatal]
  - Liver function test abnormal [Fatal]
  - Aspergillus infection [Fatal]
  - Skin mass [Fatal]
  - General physical health deterioration [Fatal]
  - Acute kidney injury [Fatal]
